FAERS Safety Report 11692145 (Version 1)
Quarter: 2015Q4

REPORT INFORMATION
  Report Type: Report from Study
  Country: US (occurrence: US)
  Receive Date: 20151103
  Receipt Date: 20151103
  Transmission Date: 20160304
  Serious: No
  Sender: FDA-Public Use
  Company Number: US-AMGEN-USASL2015113401

PATIENT
  Age: 42 Year
  Sex: Female

DRUGS (1)
  1. ENBREL [Suspect]
     Active Substance: ETANERCEPT
     Indication: PSORIATIC ARTHROPATHY
     Dosage: 50 MG, QWK
     Route: 065
     Dates: start: 201509

REACTIONS (6)
  - Psoriasis [Unknown]
  - Arthralgia [Unknown]
  - Musculoskeletal pain [Unknown]
  - Back pain [Unknown]
  - Pain [Unknown]
  - Neck pain [Unknown]

NARRATIVE: CASE EVENT DATE: 2015
